FAERS Safety Report 4695481-2 (Version None)
Quarter: 2005Q2

REPORT INFORMATION
  Report Type: 
  Country: None (occurrence: None)
  Receive Date: 20050620
  Receipt Date: 20050620
  Transmission Date: 20051028
  Serious: Yes (Hospitalization)
  Sender: FDA-Public Use
  Company Number: None

PATIENT
  Age: 47 Year
  Sex: Male
  Weight: 111.1313 kg

DRUGS (2)
  1. LITHIUM CARBONATE [Suspect]
     Indication: SCHIZOAFFECTIVE DISORDER
     Dosage: 600MG   BID   ORAL
     Route: 048
     Dates: start: 19950328, end: 20050619
  2. HCTZ/LISINOPRIL     12.5/20MG [Suspect]
     Indication: HYPERTENSION
     Dosage: 12.5/20MG   QD   ORAL
     Route: 048
     Dates: start: 20050414, end: 20050529

REACTIONS (6)
  - AGITATION [None]
  - ANTIPSYCHOTIC DRUG LEVEL INCREASED [None]
  - BLOOD CREATININE INCREASED [None]
  - CONFUSIONAL STATE [None]
  - DIALYSIS [None]
  - MENTAL STATUS CHANGES [None]
